FAERS Safety Report 10173205 (Version 1)
Quarter: 2014Q2

REPORT INFORMATION
  Report Type: Spontaneous
  Country: CN (occurrence: CN)
  Receive Date: 20140515
  Receipt Date: 20140515
  Transmission Date: 20141212
  Serious: Yes (Life-Threatening, Other)
  Sender: FDA-Public Use
  Company Number: CN-BAXTER-2014BAX023161

PATIENT
  Age: 93 Year
  Sex: Male
  Weight: 69 kg

DRUGS (2)
  1. 0.9% SODIUM CHLORIDE INJECTION [Suspect]
     Indication: MEDICATION DILUTION
     Route: 041
     Dates: start: 20130625, end: 20130628
  2. DIPYRIDAMOLE [Suspect]
     Indication: CEREBROVASCULAR DISORDER
     Route: 041
     Dates: start: 20130625, end: 20130628

REACTIONS (5)
  - Chills [Recovered/Resolved]
  - Atrial fibrillation [Recovered/Resolved]
  - Pyrexia [Recovered/Resolved]
  - Tremor [Recovered/Resolved]
  - Suffocation feeling [Recovered/Resolved]
